FAERS Safety Report 4480571-X (Version None)
Quarter: 2004Q4

REPORT INFORMATION
  Report Type: 
  Country: None (occurrence: None)
  Receive Date: 20041019
  Receipt Date: 20041007
  Transmission Date: 20050328
  Serious: Yes (Hospitalization)
  Sender: FDA-Public Use
  Company Number: 209542

PATIENT
  Age: 57 Year
  Sex: Male

DRUGS (11)
  1. RITUXAN [Suspect]
     Indication: LYMPHOMA
     Dosage: 640 MG, IV DRIP
     Route: 041
     Dates: start: 20040409, end: 20040610
  2. CYCLOPHOSPHAMIDE [Concomitant]
  3. VINCRISTINE [Concomitant]
  4. DOXORUBICIN HCL [Concomitant]
  5. PREDNISONE [Concomitant]
  6. IBUPROFEN [Concomitant]
  7. DEXCHLORPHENIRMINE (DEXCHLORPHENIRAMINE MALEATE) [Concomitant]
  8. LOXOPROFEN (LOXOPROFEN SODIUM) [Concomitant]
  9. CLARITHROMYCIN [Concomitant]
  10. G-CSF (FILGRASTIM) [Concomitant]
  11. METHYLPREDNISOLONE [Concomitant]

REACTIONS (2)
  - CYTOMEGALOVIRUS INFECTION [None]
  - INTERSTITIAL LUNG DISEASE [None]
